FAERS Safety Report 22526456 (Version 1)
Quarter: 2023Q2

REPORT INFORMATION
  Report Type: Spontaneous
  Country: US (occurrence: US)
  Receive Date: 20230606
  Receipt Date: 20230606
  Transmission Date: 20230721
  Serious: No
  Sender: FDA-Public Use
  Company Number: US-BAXTER-2023BAX023149

PATIENT

DRUGS (1)
  1. HEPARIN SODIUM [Suspect]
     Active Substance: HEPARIN SODIUM
     Dosage: AT UNSPECIFIED DOSE AND FREQUENCY, FLOW RATE OF 24.9ML/HOUR
     Route: 042

REACTIONS (3)
  - Therapy non-responder [Recovered/Resolved]
  - Device kink [Unknown]
  - Device infusion issue [Unknown]

NARRATIVE: CASE EVENT DATE: 20230320
